FAERS Safety Report 7074334-9 (Version None)
Quarter: 2010Q4

REPORT INFORMATION
  Report Type: 
  Country: None (occurrence: None)
  Receive Date: 20101029
  Receipt Date: 20101011
  Transmission Date: 20110411
  Serious: Yes (Hospitalization)
  Sender: FDA-Public Use
  Company Number: US-BAYER-201026708NA

PATIENT
  Age: 22 Year
  Sex: Female
  Weight: 86 kg

DRUGS (12)
  1. YASMIN [Suspect]
     Indication: ORAL CONTRACEPTION
     Route: 048
     Dates: start: 20050318, end: 20051202
  2. YASMIN [Suspect]
     Route: 048
     Dates: start: 20061016, end: 20080510
  3. DROSPIRENONE AND ETHINYL ESTRADIOL [Suspect]
     Indication: ORAL CONTRACEPTION
     Route: 048
     Dates: start: 20080717, end: 20091216
  4. YAZ [Suspect]
     Indication: PRODUCT USED FOR UNKNOWN INDICATION
     Route: 048
  5. AMOXICILLIN [Concomitant]
  6. LEVAQUIN [Concomitant]
  7. DOXYCYCLINE [Concomitant]
  8. AMOX / K CLAV [Concomitant]
  9. IBUPROFEN [Concomitant]
  10. ALBUTEROL [Concomitant]
  11. ALPRAZOLAM [Concomitant]
  12. LORAZEPAM [Concomitant]

REACTIONS (4)
  - ABDOMINAL PAIN UPPER [None]
  - CHOLECYSTITIS ACUTE [None]
  - CHOLELITHIASIS [None]
  - VOMITING [None]
